FAERS Safety Report 5895426-3 (Version None)
Quarter: 2008Q3

REPORT INFORMATION
  Report Type: 
  Country: None (occurrence: None)
  Receive Date: 20080923
  Receipt Date: 20080923
  Transmission Date: 20090109
  Serious: Yes (Hospitalization)
  Sender: FDA-Public Use
  Company Number: None

PATIENT
  Age: 36 Year
  Sex: Female

DRUGS (3)
  1. HUMULIN U [Suspect]
     Indication: DIABETES MELLITUS
     Dosage: 0.2 ML EVERY MORNING SQ SEVERAL YEARS
     Route: 058
  2. NOVOLIN N [Suspect]
     Indication: DIABETES MELLITUS
     Dosage: 1 ML PRE-OPERATIVELY SQ
     Route: 058
     Dates: start: 20080820, end: 20080820
  3. BD U-100 INSULIN [Concomitant]

REACTIONS (1)
  - INCORRECT DOSE ADMINISTERED [None]
